FAERS Safety Report 4998712-4 (Version None)
Quarter: 2006Q2

REPORT INFORMATION
  Report Type: 
  Country: None (occurrence: None)
  Receive Date: 20060510
  Receipt Date: 20060325
  Transmission Date: 20061013
  Serious: Yes (Hospitalization)
  Sender: FDA-Public Use
  Company Number: US-BOEHRINGER INGELHEIM PHARMACEUTICALS, INC.-2006-BP-03447BP

PATIENT
  Sex: Female

DRUGS (14)
  1. VIRAMUNE [Suspect]
     Indication: HIV INFECTION
     Route: 048
     Dates: start: 20040101
  2. ABACAVIR [Suspect]
     Indication: HIV INFECTION
     Dates: start: 20040101
  3. LAMIVUDINE [Suspect]
     Indication: HIV INFECTION
     Dates: start: 20040101
  4. NIFEDIPINE [Concomitant]
     Indication: HYPERTENSION
  5. TOPROL-XL [Concomitant]
     Indication: HYPERTENSION
  6. PAXIL [Concomitant]
     Indication: DEPRESSION
  7. INSULIN [Concomitant]
     Indication: DIABETES MELLITUS
  8. PROTONIX [Concomitant]
  9. METHADONE HCL [Concomitant]
  10. ZIAGEN [Concomitant]
     Dates: start: 20050820, end: 20050829
  11. REGLAN [Concomitant]
  12. PROZAC [Concomitant]
  13. RENOCAP [Concomitant]
  14. EPIVIR [Concomitant]
     Dates: start: 20050820, end: 20050829

REACTIONS (8)
  - CD4 LYMPHOCYTES DECREASED [None]
  - CONSTIPATION [None]
  - DEHYDRATION [None]
  - DIABETES MELLITUS INADEQUATE CONTROL [None]
  - DRUG INTOLERANCE [None]
  - FUNGAL SEPSIS [None]
  - NAUSEA [None]
  - VOMITING [None]
